FAERS Safety Report 18968404 (Version 1)
Quarter: 2021Q1

REPORT INFORMATION
  Report Type: Spontaneous
  Country: US (occurrence: US)
  Receive Date: 20210227
  Receipt Date: 20210227
  Transmission Date: 20210420
  Serious: Yes (Hospitalization)
  Sender: FDA-Public Use
  Company Number: None

PATIENT
  Age: 73 Year
  Sex: Male
  Weight: 57 kg

DRUGS (1)
  1. NIVOLUMAB [Suspect]
     Active Substance: NIVOLUMAB
     Indication: NON-SMALL CELL LUNG CANCER
     Route: 042
     Dates: start: 20180312, end: 20180507

REACTIONS (10)
  - Decreased appetite [None]
  - Confusional state [None]
  - Malignant neoplasm progression [None]
  - Feeling abnormal [None]
  - Restlessness [None]
  - Hallucination, visual [None]
  - Chromaturia [None]
  - Fatigue [None]
  - Constipation [None]
  - Hypoxia [None]

NARRATIVE: CASE EVENT DATE: 20180312
